FAERS Safety Report 14803832 (Version 1)
Quarter: 2018Q2

REPORT INFORMATION
  Report Type: Spontaneous
  Country: CN (occurrence: CN)
  Receive Date: 20180425
  Receipt Date: 20180425
  Transmission Date: 20180711
  Serious: Yes (Other)
  Sender: FDA-Public Use
  Company Number: CN-SUN PHARMACEUTICAL INDUSTRIES LTD-2018R1-168279

PATIENT
  Age: 63 Year
  Sex: Female

DRUGS (2)
  1. PEMETREXED. [Suspect]
     Active Substance: PEMETREXED
     Indication: LUNG ADENOCARCINOMA
     Dosage: 4 CYCLES, 75 MG/M^2 D1
     Route: 065
     Dates: start: 201507, end: 201510
  2. CARBOPLATIN. [Suspect]
     Active Substance: CARBOPLATIN
     Indication: LUNG ADENOCARCINOMA
     Dosage: 4 CYCLES,  AUC = 5 D1
     Route: 065
     Dates: start: 201507, end: 201510

REACTIONS (2)
  - Gastrointestinal disorder [Unknown]
  - Therapeutic response decreased [Unknown]
